FAERS Safety Report 8544826-1 (Version None)
Quarter: 2012Q3

REPORT INFORMATION
  Report Type: 
  Country: None (occurrence: None)
  Receive Date: 20120727
  Receipt Date: 20120719
  Transmission Date: 20120928
  Serious: Yes (Hospitalization)
  Sender: FDA-Public Use
  Company Number: ES-SANOFI-AVENTIS-200720066GDDC

PATIENT
  Age: 57 Year
  Sex: Female

DRUGS (6)
  1. HIPOARTEL [Concomitant]
     Dosage: DOSE AS USED: UNK
  2. SIMVASTATIN [Concomitant]
     Dosage: DOSE AS USED: UNK
  3. EPIRUBICIN [Suspect]
     Indication: BREAST CANCER
     Route: 042
     Dates: start: 20060823, end: 20061102
  4. DOCETAXEL [Suspect]
     Indication: BREAST CANCER
     Route: 042
     Dates: start: 20060823, end: 20061102
  5. CEFTAZIDIME [Concomitant]
  6. PANTOPRAZOLE [Concomitant]
     Dosage: DOSE AS USED: UNK

REACTIONS (4)
  - PYREXIA [None]
  - INFECTION [None]
  - NEUTROPENIA [None]
  - HIDRADENITIS [None]
